FAERS Safety Report 4976627-5 (Version None)
Quarter: 2006Q2

REPORT INFORMATION
  Report Type: 
  Country: None (occurrence: None)
  Receive Date: 20060419
  Receipt Date: 20050926
  Transmission Date: 20061013
  Serious: Yes (Hospitalization)
  Sender: FDA-Public Use
  Company Number: US-MERCK-0509USA03813

PATIENT
  Age: 56 Year
  Sex: Female
  Weight: 153 kg

DRUGS (1)
  1. VIOXX [Suspect]
     Route: 048

REACTIONS (6)
  - ANGINA PECTORIS [None]
  - ASTHMA [None]
  - CARDIOVASCULAR DISORDER [None]
  - HYPERGLYCAEMIA [None]
  - SLEEP APNOEA SYNDROME [None]
  - THROMBOSIS [None]
